FAERS Safety Report 23187371 (Version 2)
Quarter: 2023Q4

REPORT INFORMATION
  Report Type: Spontaneous
  Country: PL (occurrence: None)
  Receive Date: 20231115
  Receipt Date: 20231207
  Transmission Date: 20240110
  Serious: Yes (Death, Hospitalization)
  Sender: FDA-Public Use
  Company Number: PL-ROCHE-2591801

PATIENT
  Age: 62 Year
  Sex: Female
  Weight: 70 kg

DRUGS (13)
  1. ESBRIET [Suspect]
     Active Substance: PIRFENIDONE
     Indication: Interstitial lung disease
     Dosage: 1 CAPSULE OF 267 MG 3 TIMES DAILY DURING 7 DAYS (DAILY DOSE 801 MG)
     Route: 048
     Dates: start: 20191204
  2. ESBRIET [Suspect]
     Active Substance: PIRFENIDONE
     Dosage: 2 CAPSULES OF 267 MG 3 TIMES DAILY DURING 7 DAYS DAILY DOSE 1602 MG
     Route: 048
  3. ESBRIET [Suspect]
     Active Substance: PIRFENIDONE
     Dosage: 3 CAPSULES OF 267 MG 3 TIMES DAILY DURING 7 DAYS (DAILY DOSE 2403 MG)
     Route: 048
     Dates: start: 20200311
  4. ESBRIET [Suspect]
     Active Substance: PIRFENIDONE
     Dosage: THREE CAPSULES THREE TIMES PER DAY (DAILY DOSE 2403 MG)
     Route: 048
     Dates: start: 20200312, end: 20200528
  5. ESBRIET [Suspect]
     Active Substance: PIRFENIDONE
     Dosage: .THREE CAPSULES THREE TIMES PER DAY (DAILY DOSE 2403 MG)
     Route: 048
     Dates: start: 20210511, end: 20220131
  6. METFORMIN HYDROCHLORIDE [Concomitant]
     Active Substance: METFORMIN HYDROCHLORIDE
     Dosage: 500 MG 2 X 1 TABLET
  7. PERINDOPRIL [Concomitant]
     Active Substance: PERINDOPRIL
     Dosage: 4 MG 1 TABLET IN THE MORNING
  8. ACARD [Concomitant]
     Dosage: 1 X 1 TABLET IN THE EVENING
  9. BETAXOLOL HYDROCHLORIDE [Concomitant]
     Active Substance: BETAXOLOL HYDROCHLORIDE
     Dosage: 20 MG 1/2 TABLET IN THE MORNING
  10. ROSUTROX [Concomitant]
     Dosage: 20 MG 1 TABLET IN THE EVENING
  11. LACIDIPINE [Concomitant]
     Active Substance: LACIDIPINE
     Dosage: 4 MG 1 TABLET IN THE EVENING
  12. EUTHYROX [Concomitant]
     Active Substance: LEVOTHYROXINE SODIUM
     Dosage: 75 MCG 1 X 1 TABLET IN THE MORNING ON AN EMPTY STOMACH
  13. ESOMEPRAZOLE MAGNESIUM [Concomitant]
     Active Substance: ESOMEPRAZOLE\ESOMEPRAZOLE MAGNESIUM\ESOMEPRAZOLE MAGNESIUM DIHYDRATE
     Dosage: 20 MG - 1 X 1 TABLET IN THE MORNING ON AN EMPTY STOMACH

REACTIONS (2)
  - Cardiac procedure complication [Fatal]
  - Off label use [Unknown]

NARRATIVE: CASE EVENT DATE: 20230801
